FAERS Safety Report 7341374-1 (Version None)
Quarter: 2011Q1

REPORT INFORMATION
  Report Type: 
  Country: None (occurrence: None)
  Receive Date: 20110309
  Receipt Date: 20100806
  Transmission Date: 20110831
  Serious: Yes (Other)
  Sender: FDA-Public Use
  Company Number: US-BAYER-200936858NA

PATIENT
  Sex: Female
  Weight: 40.363 kg

DRUGS (8)
  1. YASMIN [Suspect]
     Dosage: UNK
     Route: 048
     Dates: start: 20060801, end: 20071001
  2. DURAHIST [Concomitant]
  3. RANITIDINE [Concomitant]
  4. LORATADINE [Concomitant]
     Indication: HYPERSENSITIVITY
  5. XOPENEX [Concomitant]
     Indication: HYPERSENSITIVITY
  6. AZITHROMYCIN [Concomitant]
  7. ALBUTEROL [Concomitant]
     Indication: HYPERSENSITIVITY
  8. CRANTEX [Concomitant]

REACTIONS (3)
  - ABDOMINAL PAIN [None]
  - BILIARY COLIC [None]
  - CHOLECYSTITIS CHRONIC [None]
